FAERS Safety Report 16893116 (Version 1)
Quarter: 2019Q4

REPORT INFORMATION
  Report Type: Spontaneous
  Country: US (occurrence: US)
  Receive Date: 20191008
  Receipt Date: 20191008
  Transmission Date: 20200122
  Serious: Yes (Other)
  Sender: FDA-Public Use
  Company Number: US-OCTA-LIT06119US

PATIENT

DRUGS (3)
  1. HUMAN NORMAL IMMUNOGLOBULIN  (IV) [Suspect]
     Active Substance: HUMAN IMMUNOGLOBULIN G
     Indication: NEONATAL ALLOIMMUNE THROMBOCYTOPENIA
     Route: 064
  2. RED BLOOD CELL [Concomitant]
     Active Substance: HUMAN RED BLOOD CELL
     Indication: ANAEMIA
     Dosage: 2 WEEKS BEFORE DELIVERY
     Route: 064
  3. PREDNISONE. [Concomitant]
     Active Substance: PREDNISONE
     Indication: NEONATAL ALLOIMMUNE THROMBOCYTOPENIA
     Route: 064

REACTIONS (1)
  - Thrombosis [Recovered/Resolved]
